FAERS Safety Report 4452569-9 (Version None)
Quarter: 2004Q3

REPORT INFORMATION
  Report Type: 
  Country: None (occurrence: None)
  Receive Date: 20040913
  Receipt Date: 20040726
  Transmission Date: 20050211
  Serious: No
  Sender: FDA-Public Use
  Company Number: 2004-BP-06257BP(0)

PATIENT
  Age: 67 Year
  Sex: Female

DRUGS (17)
  1. SPIRIVA [Suspect]
     Indication: CHRONIC OBSTRUCTIVE AIRWAYS DISEASE
     Dosage: 18 MCG (18 MCG) IH
     Route: 055
     Dates: start: 20040601
  2. ADVAIR (SERETIDE MITE) [Concomitant]
  3. NEURONTIN [Concomitant]
  4. LEXAPRO [Concomitant]
  5. PROCARDIA [Concomitant]
  6. LORAZEPAM [Concomitant]
  7. HYDROCHLOROTHIAZIDE [Concomitant]
  8. MIRAPEX [Concomitant]
  9. PREMARIN [Concomitant]
  10. PEPCID [Concomitant]
  11. GLIPIZIDE [Concomitant]
  12. PERCOCET [Concomitant]
  13. ACETYLSALICYLIC ACID SRT [Concomitant]
  14. PREDNISONE [Concomitant]
  15. LASIX [Concomitant]
  16. KCL (POTASSIUM CHLORIDE) [Concomitant]
  17. SUPERVITAMIN [Concomitant]

REACTIONS (2)
  - FATIGUE [None]
  - WHEEZING [None]
